FAERS Safety Report 5276679-1 (Version None)
Quarter: 2007Q1

REPORT INFORMATION
  Report Type: 
  Country: None (occurrence: None)
  Receive Date: 20070327
  Receipt Date: 20070314
  Transmission Date: 20070707
  Serious: Yes (Hospitalization)
  Sender: FDA-Public Use
  Company Number: PHNU2007RO01205

PATIENT
  Age: 10 Year
  Sex: Male
  Weight: 38 kg

DRUGS (3)
  1. TRILEPTAL [Suspect]
     Indication: PARTIAL SEIZURES
     Dosage: 450 MG, BID
     Route: 048
     Dates: start: 20060801
  2. TRILEPTAL [Suspect]
     Dosage: 150 MG, BID
     Route: 048
  3. DEPAKENE [Concomitant]
     Indication: PARTIAL SEIZURES
     Dosage: 450 MG, BID
     Dates: start: 20070221

REACTIONS (5)
  - CONVULSION [None]
  - HYPONATRAEMIA [None]
  - LARYNGITIS [None]
  - PNEUMONIA [None]
  - VOMITING [None]
